FAERS Safety Report 9524546 (Version 1)
Quarter: 2013Q3

REPORT INFORMATION
  Report Type: Spontaneous
  Country: US (occurrence: US)
  Receive Date: 20130916
  Receipt Date: 20130916
  Transmission Date: 20140515
  Serious: No
  Sender: FDA-Public Use
  Company Number: US-PFIZER INC-2013260263

PATIENT
  Age: 52 Year
  Sex: Male
  Weight: 90.7 kg

DRUGS (5)
  1. GLIPIZIDE XL [Suspect]
     Indication: DIABETES MELLITUS
     Dosage: 5 MG, 1X/DAY
     Route: 048
     Dates: start: 201303
  2. METFORMIN [Concomitant]
     Indication: DIABETES MELLITUS
     Dosage: UNK
  3. LOSARTAN [Concomitant]
     Indication: HYPERTENSION
     Dosage: UNK
  4. BABY ASPIRIN [Concomitant]
     Dosage: 81 MG, UNK
  5. TRADJENTA [Concomitant]
     Dosage: UNK
     Dates: end: 2013

REACTIONS (1)
  - Pain in extremity [Not Recovered/Not Resolved]
